FAERS Safety Report 5086052-7 (Version None)
Quarter: 2006Q3

REPORT INFORMATION
  Report Type: 
  Country: None (occurrence: None)
  Receive Date: 20060817
  Receipt Date: 20060809
  Transmission Date: 20061208
  Serious: Yes (Death, Hospitalization)
  Sender: FDA-Public Use
  Company Number: 430006M06FRA

PATIENT
  Age: 16 Year
  Sex: Female

DRUGS (11)
  1. NOVANTRONE [Suspect]
     Indication: ACUTE MYELOMONOCYTIC LEUKAEMIA
     Dosage: 19 MG, 1 IN 1 DAYS, INTRAVENOUS (NOT OTHERWISE SPECIFIED)
     Route: 042
     Dates: start: 20060411, end: 20060414
  2. CYTARABINE [Suspect]
     Indication: ACUTE MYELOMONOCYTIC LEUKAEMIA
     Dosage: 310 MG, 1 IN 1 DAYS, INTRAVENOUS (NOT OTHERWISE SPECIFIED)
     Route: 042
     Dates: start: 20060409, end: 20060414
  3. CHLORPROMAZINE HYDROCHLORIDE [Concomitant]
  4. PIP/TAZO [Concomitant]
  5. ONDANSETRON HCL [Concomitant]
  6. VANCOMYCIN [Concomitant]
  7. NEFOPAM HYDROCHLORIDE [Concomitant]
  8. ZOPICLONE [Concomitant]
  9. NOMEGESTROL ACETATE [Concomitant]
  10. HEPARIN [Concomitant]
  11. OMEPRAZOLE [Concomitant]

REACTIONS (12)
  - ABDOMINAL DISTENSION [None]
  - ABDOMINAL PAIN [None]
  - ACUTE RESPIRATORY DISTRESS SYNDROME [None]
  - ENTEROCOLITIS [None]
  - HEPATOMEGALY [None]
  - INFECTION [None]
  - PANCYTOPENIA [None]
  - PYREXIA [None]
  - RENAL FAILURE ACUTE [None]
  - SEPSIS [None]
  - TACHYPNOEA [None]
  - VOMITING [None]
